FAERS Safety Report 4512403-5 (Version None)
Quarter: 2004Q4

REPORT INFORMATION
  Report Type: 
  Country: None (occurrence: None)
  Receive Date: 20041124
  Receipt Date: 20041110
  Transmission Date: 20050328
  Serious: Yes (Other)
  Sender: FDA-Public Use
  Company Number: M2004-1692

PATIENT
  Age: 52 Year
  Sex: Male

DRUGS (3)
  1. RIBAVIRIN [Suspect]
     Indication: HEPATITIS C
     Dosage: 600MG DAILY ORAL
     Route: 048
     Dates: start: 20040827
  2. PEG-INTRON [Suspect]
     Indication: HEPATITIS C
     Dosage: SUBCUTANEOUS
     Route: 058
     Dates: start: 20040827
  3. VICODIN [Concomitant]

REACTIONS (2)
  - DYSGEUSIA [None]
  - WEIGHT DECREASED [None]
